FAERS Safety Report 10707424 (Version 1)
Quarter: 2015Q1

REPORT INFORMATION
  Report Type: Spontaneous
  Country: US (occurrence: None)
  Receive Date: 20150112
  Receipt Date: 20150112
  Transmission Date: 20150721
  Serious: Yes (Hospitalization)
  Sender: FDA-Public Use
  Company Number: None

PATIENT
  Age: 69 Year
  Sex: Male

DRUGS (22)
  1. ADVAIR DISKUS [Concomitant]
     Active Substance: FLUTICASONE PROPIONATE\SALMETEROL XINAFOATE
  2. NPH INSULIN [Concomitant]
     Active Substance: INSULIN BEEF
  3. WARFARIN [Concomitant]
     Active Substance: WARFARIN
  4. PROGRAF [Concomitant]
     Active Substance: TACROLIMUS\TACROLIMUS ANHYDROUS
  5. ATORVASTATIN [Concomitant]
     Active Substance: ATORVASTATIN
  6. FAMOTIDINE. [Concomitant]
     Active Substance: FAMOTIDINE
  7. CYANOCOBALAMIN. [Concomitant]
     Active Substance: CYANOCOBALAMIN
  8. PREDNISONE. [Concomitant]
     Active Substance: PREDNISONE
  9. FINASTERIDE. [Concomitant]
     Active Substance: FINASTERIDE
  10. ATENOLOL. [Concomitant]
     Active Substance: ATENOLOL
  11. VITAMIN D3 [Concomitant]
     Active Substance: CHOLECALCIFEROL
  12. KIONEX [Concomitant]
     Active Substance: SODIUM POLYSTYRENE SULFONATE
  13. DILTIAZEM [Concomitant]
     Active Substance: DILTIAZEM
  14. DIGOXIN. [Concomitant]
     Active Substance: DIGOXIN
  15. FOLIC ACID. [Concomitant]
     Active Substance: FOLIC ACID
  16. TRACLEER [Suspect]
     Active Substance: BOSENTAN\BOSENTAN MONOHYDRATE
     Indication: PULMONARY ARTERIAL HYPERTENSION
     Route: 048
     Dates: start: 201403
  17. DILTIAZEM [Concomitant]
     Active Substance: DILTIAZEM
  18. ASPIRIN. [Concomitant]
     Active Substance: ASPIRIN
  19. TAMSULOSIN [Concomitant]
     Active Substance: TAMSULOSIN
  20. FUROSEMIDE. [Concomitant]
     Active Substance: FUROSEMIDE
  21. INSULIN R [Concomitant]
  22. TIOTROPIUM [Concomitant]
     Active Substance: TIOTROPIUM

REACTIONS (2)
  - Pyrexia [None]
  - Chills [None]

NARRATIVE: CASE EVENT DATE: 20141229
